FAERS Safety Report 5410336-3 (Version None)
Quarter: 2007Q3

REPORT INFORMATION
  Report Type: 
  Country: None (occurrence: None)
  Receive Date: 20070808
  Receipt Date: 20070724
  Transmission Date: 20080115
  Serious: Yes (Other)
  Sender: FDA-Public Use
  Company Number: 8025731

PATIENT
  Age: 77 Year
  Sex: Female

DRUGS (7)
  1. KEPPRA [Suspect]
     Dosage: PO
     Route: 048
     Dates: end: 20070421
  2. KEPPRA [Suspect]
     Dosage: 2500 MG/D PO
     Route: 048
     Dates: start: 20070422, end: 20070430
  3. KEPPRA [Suspect]
     Dosage: PO
     Route: 048
     Dates: start: 20070601
  4. RATACAND [Concomitant]
  5. LIMPIDEX [Concomitant]
  6. GARDENALE [Concomitant]
  7. EXELON [Concomitant]

REACTIONS (4)
  - HELLP SYNDROME [None]
  - IATROGENIC INJURY [None]
  - LEUKOPENIA [None]
  - THROMBOCYTOPENIA [None]
